FAERS Safety Report 7270263-6 (Version None)
Quarter: 2011Q1

REPORT INFORMATION
  Report Type: 
  Country: None (occurrence: None)
  Receive Date: 20110125
  Receipt Date: 20110125
  Transmission Date: 20110831
  Serious: No
  Sender: FDA-Public Use
  Company Number: None

PATIENT
  Age: 68 Year
  Sex: Female
  Weight: 70.3075 kg

DRUGS (2)
  1. CRESTOR [Suspect]
     Indication: BLOOD CHOLESTEROL INCREASED
     Dosage: 1 TAB DAILY PO
     Route: 048
     Dates: start: 20090101, end: 20100101
  2. CRESTOR [Suspect]
     Indication: BLOOD TRIGLYCERIDES INCREASED
     Dosage: 1 TAB DAILY PO
     Route: 048
     Dates: start: 20090101, end: 20100101

REACTIONS (7)
  - SENSATION OF HEAVINESS [None]
  - DRUG EFFECT DECREASED [None]
  - MUSCLE SPASMS [None]
  - MUSCULAR WEAKNESS [None]
  - CHEST DISCOMFORT [None]
  - GAIT DISTURBANCE [None]
  - OEDEMA PERIPHERAL [None]
